FAERS Safety Report 6256429-2 (Version None)
Quarter: 2009Q3

REPORT INFORMATION
  Report Type: 
  Country: None (occurrence: None)
  Receive Date: 20090706
  Receipt Date: 20080721
  Transmission Date: 20100115
  Serious: Yes (Death)
  Sender: FDA-Public Use
  Company Number: MX-NOVOPROD-275747

PATIENT
  Age: 84 Year
  Sex: Female
  Weight: 68 kg

DRUGS (5)
  1. LEVEMIR [Suspect]
     Indication: TYPE 2 DIABETES MELLITUS
     Dosage: 16 IU, QD
     Dates: start: 20071226
  2. AMIDARONE [Concomitant]
     Dosage: 200 MG, QD
     Route: 048
  3. FUROSEMIDE [Concomitant]
     Dosage: 60 MG, QD
     Route: 048
  4. ALPRAZOLAM [Concomitant]
     Dosage: .25 MG, QD
     Route: 048
  5. METFORMIN HCL [Concomitant]
     Dosage: 1.5 MG, QD
     Route: 048

REACTIONS (1)
  - BILE DUCT CANCER [None]
